FAERS Safety Report 18005998 (Version 7)
Quarter: 2025Q3

REPORT INFORMATION
  Report Type: Spontaneous
  Country: EU (occurrence: EU)
  Receive Date: 20200710
  Receipt Date: 20250724
  Transmission Date: 20251020
  Serious: Yes (Death, Other)
  Sender: MYLAN
  Company Number: EU-002147023-NVSC2020PL181044

PATIENT
  Age: 68 Year
  Sex: Female

DRUGS (46)
  1. ETOPOSIDE [Suspect]
     Active Substance: ETOPOSIDE
     Indication: Small cell lung cancer
  2. ETOPOSIDE [Suspect]
     Active Substance: ETOPOSIDE
     Route: 065
  3. ETOPOSIDE [Suspect]
     Active Substance: ETOPOSIDE
     Route: 065
  4. ETOPOSIDE [Suspect]
     Active Substance: ETOPOSIDE
  5. ETOPOSIDE [Suspect]
     Active Substance: ETOPOSIDE
  6. ETOPOSIDE [Suspect]
     Active Substance: ETOPOSIDE
  7. ACETAMINOPHEN\TRAMADOL [Suspect]
     Active Substance: ACETAMINOPHEN\TRAMADOL
     Indication: Chest pain
  8. ACETAMINOPHEN\TRAMADOL [Suspect]
     Active Substance: ACETAMINOPHEN\TRAMADOL
     Route: 065
  9. ACETAMINOPHEN\TRAMADOL [Suspect]
     Active Substance: ACETAMINOPHEN\TRAMADOL
     Route: 065
  10. ACETAMINOPHEN\TRAMADOL [Suspect]
     Active Substance: ACETAMINOPHEN\TRAMADOL
  11. OMEPRAZOLE [Suspect]
     Active Substance: OMEPRAZOLE
     Indication: Abdominal pain upper
  12. OMEPRAZOLE [Suspect]
     Active Substance: OMEPRAZOLE
     Route: 065
  13. OMEPRAZOLE [Suspect]
     Active Substance: OMEPRAZOLE
     Route: 065
  14. OMEPRAZOLE [Suspect]
     Active Substance: OMEPRAZOLE
  15. CARBOPLATIN [Suspect]
     Active Substance: CARBOPLATIN
     Indication: Small cell lung cancer
     Route: 065
  16. CARBOPLATIN [Suspect]
     Active Substance: CARBOPLATIN
     Route: 065
  17. CARBOPLATIN [Suspect]
     Active Substance: CARBOPLATIN
     Route: 065
  18. CARBOPLATIN [Suspect]
     Active Substance: CARBOPLATIN
     Route: 065
  19. CARBOPLATIN [Suspect]
     Active Substance: CARBOPLATIN
     Route: 065
  20. CARBOPLATIN [Suspect]
     Active Substance: CARBOPLATIN
     Route: 065
  21. CARBOPLATIN [Suspect]
     Active Substance: CARBOPLATIN
     Route: 065
  22. CARBOPLATIN [Suspect]
     Active Substance: CARBOPLATIN
     Route: 065
  23. CARBOPLATIN [Suspect]
     Active Substance: CARBOPLATIN
     Route: 065
  24. CARBOPLATIN [Suspect]
     Active Substance: CARBOPLATIN
     Route: 065
  25. CARBOPLATIN [Suspect]
     Active Substance: CARBOPLATIN
     Route: 065
  26. CARBOPLATIN [Suspect]
     Active Substance: CARBOPLATIN
     Route: 065
  27. METFORMIN [Suspect]
     Active Substance: METFORMIN HYDROCHLORIDE
     Indication: Type 2 diabetes mellitus
  28. METFORMIN [Suspect]
     Active Substance: METFORMIN HYDROCHLORIDE
     Route: 065
  29. METFORMIN [Suspect]
     Active Substance: METFORMIN HYDROCHLORIDE
     Route: 065
  30. METFORMIN [Suspect]
     Active Substance: METFORMIN HYDROCHLORIDE
  31. LEVOTHYROXINE [Suspect]
     Active Substance: LEVOTHYROXINE
     Indication: Hypothyroidism
  32. LEVOTHYROXINE [Suspect]
     Active Substance: LEVOTHYROXINE
     Route: 065
  33. LEVOTHYROXINE [Suspect]
     Active Substance: LEVOTHYROXINE
     Route: 065
  34. LEVOTHYROXINE [Suspect]
     Active Substance: LEVOTHYROXINE
  35. ATEZOLIZUMAB [Suspect]
     Active Substance: ATEZOLIZUMAB
     Indication: Small cell lung cancer
     Dosage: 120 MG, EVERY 3 WEEKS (32 CYCLICAL)
     Route: 042
     Dates: start: 201806
  36. ATEZOLIZUMAB [Suspect]
     Active Substance: ATEZOLIZUMAB
     Dosage: 120 MG, EVERY 3 WEEKS (32 CYCLICAL)
     Dates: start: 201806
  37. ATEZOLIZUMAB [Suspect]
     Active Substance: ATEZOLIZUMAB
     Dosage: 120 MG, EVERY 3 WEEKS (32 CYCLICAL)
     Dates: start: 201806
  38. ATEZOLIZUMAB [Suspect]
     Active Substance: ATEZOLIZUMAB
     Dosage: 120 MG, EVERY 3 WEEKS (32 CYCLICAL)
     Route: 042
     Dates: start: 201806
  39. ATEZOLIZUMAB [Suspect]
     Active Substance: ATEZOLIZUMAB
     Dosage: 120 MILLIGRAM, 3XW
     Route: 042
  40. ATEZOLIZUMAB [Suspect]
     Active Substance: ATEZOLIZUMAB
     Dosage: 120 MILLIGRAM, 3XW
  41. ATEZOLIZUMAB [Suspect]
     Active Substance: ATEZOLIZUMAB
     Dosage: 120 MILLIGRAM, 3XW
  42. ATEZOLIZUMAB [Suspect]
     Active Substance: ATEZOLIZUMAB
     Dosage: 120 MILLIGRAM, 3XW
     Route: 042
  43. ATEZOLIZUMAB [Suspect]
     Active Substance: ATEZOLIZUMAB
     Dosage: 120 MILLIGRAM, Q3W
     Route: 042
     Dates: start: 201804
  44. ATEZOLIZUMAB [Suspect]
     Active Substance: ATEZOLIZUMAB
     Dosage: 120 MILLIGRAM, Q3W
     Route: 042
     Dates: start: 201804
  45. ATEZOLIZUMAB [Suspect]
     Active Substance: ATEZOLIZUMAB
     Dosage: 120 MILLIGRAM, Q3W
     Dates: start: 201804
  46. ATEZOLIZUMAB [Suspect]
     Active Substance: ATEZOLIZUMAB
     Dosage: 120 MILLIGRAM, Q3W
     Dates: start: 201804

REACTIONS (13)
  - Hypothyroidism [Fatal]
  - Hypokalaemia [Fatal]
  - Arthralgia [Fatal]
  - Oedema peripheral [Fatal]
  - Lung neoplasm malignant [Fatal]
  - Blood alkaline phosphatase increased [Fatal]
  - Anxiety [Fatal]
  - Condition aggravated [Fatal]
  - Neutropenia [Fatal]
  - Anaemia [Fatal]
  - Disease progression [Unknown]
  - Vomiting [Unknown]
  - Off label use [Unknown]
